FAERS Safety Report 5341292-4 (Version None)
Quarter: 2007Q2

REPORT INFORMATION
  Report Type: 
  Country: None (occurrence: None)
  Receive Date: 20070530
  Receipt Date: 20070518
  Transmission Date: 20071010
  Serious: Yes (Hospitalization, Other)
  Sender: FDA-Public Use
  Company Number: 2007BI010830

PATIENT
  Age: 58 Year
  Sex: Female

DRUGS (8)
  1. AVONEX [Suspect]
     Indication: MULTIPLE SCLEROSIS
     Dosage: 30 UG; QW; IM
     Route: 030
     Dates: start: 20020401, end: 20030101
  2. AVONEX [Suspect]
     Indication: MULTIPLE SCLEROSIS
     Dosage: 30 UG; QW; IM
     Route: 030
     Dates: start: 20030101
  3. ASPIRIN [Concomitant]
  4. VERAPAMIL [Concomitant]
  5. GABAPENTIN [Concomitant]
  6. IBUPROFEN [Concomitant]
  7. TYLENOL [Concomitant]
  8. ADVIL [Concomitant]

REACTIONS (13)
  - BALANCE DISORDER [None]
  - BREAST CANCER FEMALE [None]
  - COGNITIVE DISORDER [None]
  - CONDITION AGGRAVATED [None]
  - COORDINATION ABNORMAL [None]
  - DIABETES MELLITUS [None]
  - DIZZINESS [None]
  - FALL [None]
  - NAUSEA [None]
  - OSTEOARTHRITIS [None]
  - PAIN [None]
  - VASOSPASM [None]
  - VISUAL DISTURBANCE [None]
